FAERS Safety Report 6839099-1 (Version None)
Quarter: 2010Q3

REPORT INFORMATION
  Report Type: 
  Country: None (occurrence: None)
  Receive Date: 20100714
  Receipt Date: 20100707
  Transmission Date: 20110219
  Serious: No
  Sender: FDA-Public Use
  Company Number: US-BIOGENIDEC-2010BI022911

PATIENT
  Age: 60 Year
  Sex: Male
  Weight: 77 kg

DRUGS (3)
  1. AVONEX [Suspect]
     Indication: MULTIPLE SCLEROSIS
     Route: 030
     Dates: start: 20021129, end: 20030830
  2. AVONEX [Suspect]
     Route: 030
     Dates: start: 20030830, end: 20100120
  3. SYNTHROID [Concomitant]
     Indication: HYPOTHYROIDISM
     Dates: start: 20000101

REACTIONS (4)
  - BLOOD CHOLESTEROL INCREASED [None]
  - MULTIPLE SCLEROSIS [None]
  - MUSCLE SPASMS [None]
  - PAIN [None]
